FAERS Safety Report 4805246-6 (Version None)
Quarter: 2005Q4

REPORT INFORMATION
  Report Type: 
  Country: None (occurrence: None)
  Receive Date: 20051020
  Receipt Date: 20050413
  Transmission Date: 20060501
  Serious: Yes (Death, Hospitalization)
  Sender: FDA-Public Use
  Company Number: US-MERCK-0504USA02166

PATIENT
  Age: 56 Year
  Sex: Female
  Weight: 127 kg

DRUGS (6)
  1. VIOXX [Suspect]
     Indication: OSTEOARTHRITIS
     Route: 048
     Dates: start: 20020101, end: 20040601
  2. TOPROL-XL [Concomitant]
     Indication: BLOOD PRESSURE
     Route: 065
  3. AVALIDE [Concomitant]
     Indication: BLOOD PRESSURE
     Route: 065
  4. NORVASC [Concomitant]
     Indication: BLOOD PRESSURE
     Route: 065
  5. GLUCOPHAGE [Concomitant]
     Indication: GLUCOSE TOLERANCE IMPAIRED
     Route: 065
  6. TRICOR [Concomitant]
     Indication: HYPERLIPIDAEMIA
     Route: 065

REACTIONS (8)
  - ARTERIOSCLEROSIS [None]
  - CARDIOMEGALY [None]
  - DUODENAL ULCER HAEMORRHAGE [None]
  - HEPATIC CONGESTION [None]
  - HIATUS HERNIA [None]
  - OESOPHAGITIS ULCERATIVE [None]
  - PULMONARY EMBOLISM [None]
  - SPLEEN CONGESTION [None]
